FAERS Safety Report 10196397 (Version 2)
Quarter: 2014Q2

REPORT INFORMATION
  Report Type: Spontaneous
  Country: DE (occurrence: DE)
  Receive Date: 20140527
  Receipt Date: 20140616
  Transmission Date: 20141212
  Serious: Yes (Hospitalization)
  Sender: FDA-Public Use
  Company Number: DE-JNJFOC-20140509366

PATIENT
  Age: 30 Year
  Sex: Female

DRUGS (2)
  1. HALDOL [Suspect]
     Indication: SCHIZOPHRENIA, PARANOID TYPE
     Route: 030
     Dates: start: 20130517, end: 20130517
  2. DIAZEPAM [Interacting]
     Indication: SCHIZOPHRENIA, PARANOID TYPE
     Route: 042
     Dates: start: 20130517, end: 20130517

REACTIONS (2)
  - Sinus bradycardia [Recovering/Resolving]
  - Drug interaction [Unknown]
